FAERS Safety Report 8349664-0 (Version None)
Quarter: 2012Q2

REPORT INFORMATION
  Report Type: 
  Country: None (occurrence: None)
  Receive Date: 20120510
  Receipt Date: 20120502
  Transmission Date: 20120825
  Serious: No
  Sender: FDA-Public Use
  Company Number: US-ROXANE LABORATORIES, INC.-2012-RO-01173RO

PATIENT
  Sex: Male
  Weight: 102 kg

DRUGS (5)
  1. PREDNISONE TAB [Suspect]
     Indication: ARTHRITIS
     Dosage: 60 MG
     Route: 048
     Dates: start: 20120412
  2. PREDNISONE TAB [Suspect]
     Dosage: 20 MG
     Route: 048
     Dates: end: 20120426
  3. PREDNISONE TAB [Suspect]
     Dosage: 40 MG
     Route: 048
  4. BACLOFEN [Concomitant]
     Indication: MUSCLE SPASMS
     Dates: start: 20120411, end: 20120423
  5. PERCOCET [Concomitant]
     Indication: BACK PAIN
     Dates: start: 20120408, end: 20120424

REACTIONS (1)
  - BLOOD GLUCOSE INCREASED [None]
